FAERS Safety Report 10102539 (Version 2)
Quarter: 2016Q1

REPORT INFORMATION
  Report Type: Spontaneous
  Country: US (occurrence: US)
  Receive Date: 20140424
  Receipt Date: 20160310
  Transmission Date: 20160525
  Serious: Yes (Other)
  Sender: FDA-Public Use
  Company Number: US-TEVA-477044USA

PATIENT
  Sex: Female

DRUGS (1)
  1. COPAXONE [Suspect]
     Active Substance: GLATIRAMER ACETATE
     Indication: RELAPSING-REMITTING MULTIPLE SCLEROSIS
     Route: 058

REACTIONS (16)
  - Decreased appetite [Unknown]
  - Osteoarthritis [Unknown]
  - Muscular weakness [Unknown]
  - Optical coherence tomography abnormal [Unknown]
  - Thinking abnormal [Unknown]
  - Cartilage atrophy [Unknown]
  - Feeling cold [Unknown]
  - Gastrointestinal hypomotility [Unknown]
  - Weight decreased [Unknown]
  - Feeling jittery [Unknown]
  - Vomiting [Unknown]
  - Injection site reaction [Unknown]
  - Arthralgia [Unknown]
  - Secondary progressive multiple sclerosis [Unknown]
  - Chills [Unknown]
  - Muscle injury [Unknown]

NARRATIVE: CASE EVENT DATE: 2015
